FAERS Safety Report 4354407-1 (Version None)
Quarter: 2004Q2

REPORT INFORMATION
  Report Type: 
  Country: None (occurrence: None)
  Receive Date: 20040503
  Receipt Date: 20040426
  Transmission Date: 20050107
  Serious: Yes (Life-Threatening)
  Sender: FDA-Public Use
  Company Number: 2004SE02351

PATIENT
  Age: 35 Year
  Sex: Male
  Weight: 83 kg

DRUGS (1)
  1. ACCOLATE [Suspect]
     Indication: ASTHMA
     Dates: start: 20040201, end: 20040209

REACTIONS (6)
  - BLOOD URINE [None]
  - DYSPEPSIA [None]
  - NEUTROPHIL COUNT INCREASED [None]
  - PAIN [None]
  - URINE ANALYSIS ABNORMAL [None]
  - WHITE BLOOD CELL COUNT INCREASED [None]
